FAERS Safety Report 22023186 (Version 1)
Quarter: 2023Q1

REPORT INFORMATION
  Report Type: Spontaneous
  Country: MX (occurrence: MX)
  Receive Date: 20230223
  Receipt Date: 20230223
  Transmission Date: 20230417
  Serious: Yes (Death, Other)
  Sender: FDA-Public Use
  Company Number: MX-BRISTOL-MYERS SQUIBB COMPANY-2023-026078

PATIENT

DRUGS (2)
  1. OPDIVO [Suspect]
     Active Substance: NIVOLUMAB
     Indication: Acral lentiginous melanoma stage IV
     Dosage: DOSE: OPDIVO: 240 MG, FREQ: NAV STRENGTH: 100MG/10ML
  2. YERVOY [Suspect]
     Active Substance: IPILIMUMAB
     Indication: Acral lentiginous melanoma stage IV
     Dosage: YERVOY: 90 MG:  FREQ: NAV STRENGTH: 50MG/10ML

REACTIONS (2)
  - Immune thrombocytopenia [Fatal]
  - Off label use [Unknown]

NARRATIVE: CASE EVENT DATE: 20230211
